FAERS Safety Report 7746038-8 (Version None)
Quarter: 2011Q3

REPORT INFORMATION
  Report Type: 
  Country: None (occurrence: None)
  Receive Date: 20110913
  Receipt Date: 20110801
  Transmission Date: 20111222
  Serious: No
  Sender: FDA-Public Use
  Company Number: DE-ELI_LILLY_AND_COMPANY-DE201108000484

PATIENT
  Age: 78 Year
  Sex: Female

DRUGS (6)
  1. XIPAMID [Concomitant]
  2. PHENPROCOUMON [Concomitant]
  3. SIMVASTATIN [Concomitant]
  4. DULOXETIME HYDROCHLORIDE [Suspect]
     Dosage: 80 MG, QD
     Route: 048
     Dates: start: 20110701
  5. OMEPRAZOLE [Concomitant]
  6. VITALUX [Concomitant]

REACTIONS (1)
  - INTERNATIONAL NORMALISED RATIO INCREASED [None]
